FAERS Safety Report 9269931 (Version 1)
Quarter: 2013Q2

REPORT INFORMATION
  Report Type: Spontaneous
  Country: ES (occurrence: ES)
  Receive Date: 20130503
  Receipt Date: 20130503
  Transmission Date: 20140414
  Serious: Yes (Other)
  Sender: FDA-Public Use
  Company Number: ES-SANOFI-AVENTIS-2013SA044598

PATIENT
  Age: 88 Year
  Sex: Male

DRUGS (8)
  1. ENOXAPARIN SODIUM [Suspect]
     Indication: THROMBOSIS PROPHYLAXIS
     Route: 058
  2. ENALAPRIL [Concomitant]
  3. INDAPAMIDE [Concomitant]
  4. ADIRO [Concomitant]
  5. FLUOROMETHOLONE [Concomitant]
  6. DRUGS FOR OBSTRUCTIVE AIRWAY DISEASES [Concomitant]
     Indication: PNEUMONIA
  7. AMOXICILLIN/CLAVULANIC ACID [Concomitant]
     Indication: ANTIBIOTIC THERAPY
  8. CLARITHROMYCIN [Concomitant]
     Indication: ANTIBIOTIC THERAPY

REACTIONS (4)
  - Pancytopenia [Recovering/Resolving]
  - White blood cell count decreased [Recovered/Resolved]
  - Haemoglobin decreased [Recovering/Resolving]
  - Platelet count decreased [Recovered/Resolved]
